FAERS Safety Report 23988664 (Version 1)
Quarter: 2024Q2

REPORT INFORMATION
  Report Type: Spontaneous
  Country: US (occurrence: US)
  Receive Date: 20240619
  Receipt Date: 20240619
  Transmission Date: 20240715
  Serious: Yes (Life-Threatening, Hospitalization, Other)
  Sender: FDA-Public Use
  Company Number: None

PATIENT
  Age: 46 Year
  Sex: Male

DRUGS (10)
  1. METFORMIN [Suspect]
     Active Substance: METFORMIN HYDROCHLORIDE
     Indication: Insulin autoimmune syndrome
     Dosage: UNK
     Route: 065
  2. METFORMIN [Suspect]
     Active Substance: METFORMIN HYDROCHLORIDE
     Indication: Type 2 diabetes mellitus
  3. MYCOPHENOLATE MOFETIL [Suspect]
     Active Substance: MYCOPHENOLATE MOFETIL
     Indication: Insulin autoimmune syndrome
     Dosage: UNK
     Route: 065
  4. HUMAN IMMUNOGLOBULIN G [Suspect]
     Active Substance: HUMAN IMMUNOGLOBULIN G
     Indication: Insulin autoimmune syndrome
     Dosage: UNK
     Route: 042
  5. INSULIN NOS [Concomitant]
     Active Substance: INSULIN NOS
     Indication: Diabetic ketoacidosis
     Dosage: UNK (INSULIN DRIP)
     Route: 065
  6. INSULIN NOS [Concomitant]
     Active Substance: INSULIN NOS
     Indication: Type 2 diabetes mellitus
     Dosage: 1000 INTERNATIONAL UNIT, DAILY
     Route: 058
  7. INSULIN NOS [Concomitant]
     Active Substance: INSULIN NOS
     Dosage: UNK (INSULIN INFUSION RATE OF 30?UNITS/H?DECLINED TO 18?UNITS/H)
     Route: 065
  8. INSULIN NOS [Concomitant]
     Active Substance: INSULIN NOS
     Dosage: UNK, TRANSITIONED TO SC INSULIN [U500]
     Route: 058
  9. RITUXIMAB [Concomitant]
     Active Substance: RITUXIMAB
     Indication: Insulin autoimmune syndrome
     Dosage: UNK
     Route: 065
  10. DEXAMETHASONE [Concomitant]
     Active Substance: DEXAMETHASONE
     Indication: Insulin autoimmune syndrome
     Dosage: UNK
     Route: 065

REACTIONS (3)
  - Acidosis [Unknown]
  - Therapy non-responder [Unknown]
  - Off label use [Unknown]
